FAERS Safety Report 19585850 (Version 1)
Quarter: 2021Q3

REPORT INFORMATION
  Report Type: Report from Study
  Country: US (occurrence: US)
  Receive Date: 20210720
  Receipt Date: 20210720
  Transmission Date: 20211014
  Serious: Yes (Other)
  Sender: FDA-Public Use
  Company Number: US-EISAI MEDICAL RESEARCH-EC-2021-095303

PATIENT
  Age: 58 Year
  Sex: Female

DRUGS (2)
  1. LENVIMA [Suspect]
     Active Substance: LENVATINIB
     Indication: RENAL CANCER
     Route: 048
     Dates: start: 20210624, end: 2021
  2. EVEROLIMUS. [Suspect]
     Active Substance: EVEROLIMUS
     Indication: RENAL CANCER
     Dosage: DOSE AND FREQUENCY UNKNOWN
     Route: 048

REACTIONS (7)
  - Stomatitis [Unknown]
  - Diverticular perforation [Unknown]
  - Arthritis [Recovering/Resolving]
  - Nausea [Recovering/Resolving]
  - Retching [Unknown]
  - Oropharyngeal pain [Unknown]
  - Oral pain [Unknown]

NARRATIVE: CASE EVENT DATE: 2021
